FAERS Safety Report 18489725 (Version 1)
Quarter: 2020Q4

REPORT INFORMATION
  Report Type: Spontaneous
  Country: US (occurrence: US)
  Receive Date: 20201110
  Receipt Date: 20201110
  Transmission Date: 20210114
  Serious: No
  Sender: FDA-Public Use
  Company Number: None

PATIENT
  Age: 67 Year
  Sex: Male
  Weight: 87.17 kg

DRUGS (15)
  1. MVI [Concomitant]
     Active Substance: VITAMINS
  2. VTAMIN D [Concomitant]
  3. FERROUS SULFATE. [Concomitant]
     Active Substance: FERROUS SULFATE
  4. OSTEO BI FLEX [Concomitant]
  5. TRELSTAR [Concomitant]
     Active Substance: TRIPTORELIN PAMOATE
  6. CALCIUM, VIT D [Concomitant]
  7. PREDNISONE. [Concomitant]
     Active Substance: PREDNISONE
  8. ABIRATERONE. [Suspect]
     Active Substance: ABIRATERONE ACETATE
     Indication: PROSTATE CANCER
     Route: 048
     Dates: start: 20201005
  9. TRIAMCINOLONE [Concomitant]
     Active Substance: TRIAMCINOLONE
  10. CALCIUM, MG, ZINC [Concomitant]
  11. OMEPRAZOLE. [Concomitant]
     Active Substance: OMEPRAZOLE
  12. VITAMIN B12 [Concomitant]
     Active Substance: CYANOCOBALAMIN
  13. XGEVA [Concomitant]
     Active Substance: DENOSUMAB
  14. FAMOTIDINE. [Concomitant]
     Active Substance: FAMOTIDINE
  15. GARLIC. [Concomitant]
     Active Substance: GARLIC

REACTIONS (1)
  - Anger [None]

NARRATIVE: CASE EVENT DATE: 20201110
